FAERS Safety Report 9827260 (Version 1)
Quarter: 2014Q1

REPORT INFORMATION
  Report Type: Spontaneous
  Country: US (occurrence: US)
  Receive Date: 20140117
  Receipt Date: 20140117
  Transmission Date: 20141002
  Serious: No
  Sender: FDA-Public Use
  Company Number: US-BRISTOL-MYERS SQUIBB COMPANY-19814623

PATIENT
  Age: 38 Year
  Sex: Male
  Weight: 109.75 kg

DRUGS (4)
  1. YERVOY [Suspect]
     Indication: MALIGNANT MELANOMA
     Dates: start: 201310
  2. OXYCODONE [Concomitant]
     Indication: PAIN
  3. XANAX [Concomitant]
     Indication: ANXIETY
  4. METFORMIN [Concomitant]
     Indication: DIABETES MELLITUS

REACTIONS (1)
  - Fatigue [Unknown]
